FAERS Safety Report 18456557 (Version 2)
Quarter: 2022Q2

REPORT INFORMATION
  Report Type: Spontaneous
  Country: AU (occurrence: AU)
  Receive Date: 20201103
  Receipt Date: 20220617
  Transmission Date: 20220721
  Serious: Yes (Other)
  Sender: FDA-Public Use
  Company Number: AU-MLMSERVICE-20201014-2531854-1

PATIENT
  Age: 64 Year
  Sex: Male

DRUGS (6)
  1. CLOZAPINE [Suspect]
     Active Substance: CLOZAPINE
     Indication: Psychotic symptom
  2. VALPROATE SODIUM [Concomitant]
     Active Substance: VALPROATE SODIUM
     Indication: Psychotic symptom
  3. ONDANSETRON [Concomitant]
     Active Substance: ONDANSETRON
     Indication: Obsessive-compulsive disorder
  4. MEMANTINE [Concomitant]
     Active Substance: MEMANTINE
     Indication: Obsessive-compulsive disorder
  5. AMISULPRIDE [Concomitant]
     Active Substance: AMISULPRIDE
  6. CLOMIPRAMINE [Concomitant]
     Active Substance: CLOMIPRAMINE
     Indication: Obsessive-compulsive disorder

REACTIONS (2)
  - Obsessive-compulsive disorder [Unknown]
  - Condition aggravated [Unknown]
